FAERS Safety Report 13788511 (Version 2)
Quarter: 2017Q4

REPORT INFORMATION
  Report Type: Spontaneous
  Country: US (occurrence: US)
  Receive Date: 20170725
  Receipt Date: 20171010
  Transmission Date: 20180320
  Serious: No
  Sender: FDA-Public Use
  Company Number: US-JNJFOC-20170622792

PATIENT
  Sex: Female
  Weight: 51 kg

DRUGS (19)
  1. SINGULAIR [Concomitant]
     Active Substance: MONTELUKAST SODIUM
  2. TOPROL XL [Concomitant]
     Active Substance: METOPROLOL SUCCINATE
  3. VITAMIN D3 [Concomitant]
     Active Substance: CHOLECALCIFEROL
  4. IMBRUVICA [Suspect]
     Active Substance: IBRUTINIB
     Indication: MANTLE CELL LYMPHOMA
     Route: 048
     Dates: start: 20161116
  5. VITAMIN D [Concomitant]
     Active Substance: CHOLECALCIFEROL
  6. IMBRUVICA [Suspect]
     Active Substance: IBRUTINIB
     Indication: MANTLE CELL LYMPHOMA
     Route: 048
     Dates: start: 20161130
  7. PLAVIX [Concomitant]
     Active Substance: CLOPIDOGREL BISULFATE
  8. IMDUR [Concomitant]
     Active Substance: ISOSORBIDE MONONITRATE
  9. PROPOFOL. [Concomitant]
     Active Substance: PROPOFOL
  10. POTASSIUM CL [Concomitant]
     Active Substance: POTASSIUM CHLORIDE
  11. LASIX [Concomitant]
     Active Substance: FUROSEMIDE
  12. MECLIZINE [Concomitant]
     Active Substance: MECLIZINE HYDROCHLORIDE
  13. IRBESARTAN. [Concomitant]
     Active Substance: IRBESARTAN
  14. PRAVACHOL [Concomitant]
     Active Substance: PRAVASTATIN SODIUM
  15. GLYCERYL TRINITRATE [Concomitant]
     Active Substance: NITROGLYCERIN
  16. NITROSTAT [Concomitant]
     Active Substance: NITROGLYCERIN
  17. ANTIVERT [Concomitant]
     Active Substance: MECLIZINE HYDROCHLORIDE
  18. VITAMIN B12 [Concomitant]
     Active Substance: CYANOCOBALAMIN
  19. FOLIC ACID. [Concomitant]
     Active Substance: FOLIC ACID

REACTIONS (4)
  - Product physical issue [Unknown]
  - Regurgitation [Unknown]
  - Dyspnoea [Unknown]
  - Asthenia [Unknown]
